FAERS Safety Report 6973757-3 (Version None)
Quarter: 2010Q3

REPORT INFORMATION
  Report Type: 
  Country: None (occurrence: None)
  Receive Date: 20100909
  Receipt Date: 20100830
  Transmission Date: 20110219
  Serious: Yes (Other)
  Sender: FDA-Public Use
  Company Number: A0802885A

PATIENT
  Sex: Male
  Weight: 70 kg

DRUGS (4)
  1. ELTROMBOPAG [Suspect]
     Indication: THROMBOCYTOPENIA
     Dosage: 25MG PER DAY
     Route: 048
     Dates: start: 20090309, end: 20090323
  2. ELTROMBOPAG [Suspect]
     Dosage: 25MG PER DAY
     Route: 048
     Dates: start: 20090324
  3. PEGASYS [Suspect]
     Dosage: 180MCG WEEKLY
     Route: 058
     Dates: start: 20090324
  4. COPEGUS [Suspect]
     Route: 048
     Dates: start: 20090324

REACTIONS (1)
  - VISUAL ACUITY REDUCED [None]
